FAERS Safety Report 21027234 (Version 1)
Quarter: 2022Q2

REPORT INFORMATION
  Report Type: Report from Study
  Country: GB (occurrence: GB)
  Receive Date: 20220630
  Receipt Date: 20220630
  Transmission Date: 20220720
  Serious: Yes (Other)
  Sender: FDA-Public Use
  Company Number: GB-GLAXOSMITHKLINE-GB2022EME099548

PATIENT

DRUGS (1)
  1. NIRAPARIB [Suspect]
     Active Substance: NIRAPARIB
     Indication: Ovarian cancer
     Dosage: 200 MG

REACTIONS (1)
  - Malignant neoplasm progression [Unknown]
